FAERS Safety Report 9085584 (Version 1)
Quarter: 2013Q1

REPORT INFORMATION
  Report Type: Report from Study
  Country: US (occurrence: US)
  Receive Date: 20130130
  Receipt Date: 20130130
  Transmission Date: 20140127
  Serious: No
  Sender: FDA-Public Use
  Company Number: US-ABBOTT-12P-163-0980227-00

PATIENT
  Age: 46 Year
  Sex: Female

DRUGS (2)
  1. HUMIRA [Suspect]
     Indication: CROHN^S DISEASE
     Dosage: DAY 1
     Route: 058
     Dates: start: 20120822
  2. HUMIRA [Suspect]
     Dosage: DAY 15
     Route: 058

REACTIONS (4)
  - Constipation [Unknown]
  - Mucous stools [Unknown]
  - Haematochezia [Unknown]
  - Menstruation irregular [Unknown]
